FAERS Safety Report 6216856-6 (Version None)
Quarter: 2009Q2

REPORT INFORMATION
  Report Type: 
  Country: None (occurrence: None)
  Receive Date: 20090603
  Receipt Date: 20090603
  Transmission Date: 20091009
  Serious: Yes (Hospitalization)
  Sender: FDA-Public Use
  Company Number: None

PATIENT
  Sex: Female
  Weight: 81.1939 kg

DRUGS (2)
  1. DIAZEPAM [Suspect]
     Indication: ANXIETY
     Dosage: 5 MG 3 TIMES A DAY
     Dates: end: 20090515
  2. DIAZEPAM [Suspect]
     Indication: PANIC ATTACK
     Dosage: 5 MG 3 TIMES A DAY
     Dates: end: 20090515

REACTIONS (1)
  - PRURITUS GENERALISED [None]
